FAERS Safety Report 20992911 (Version 1)
Quarter: 2022Q2

REPORT INFORMATION
  Report Type: Spontaneous
  Country: US (occurrence: None)
  Receive Date: 20220621
  Receipt Date: 20220621
  Transmission Date: 20220720
  Serious: Yes (Other)
  Sender: FDA-Public Use
  Company Number: None

PATIENT
  Sex: Male

DRUGS (2)
  1. TIZANIDINE [Suspect]
     Active Substance: TIZANIDINE
  2. BACLOFEN [Suspect]
     Active Substance: BACLOFEN

REACTIONS (1)
  - Drug ineffective [None]
